FAERS Safety Report 9853915 (Version 4)
Quarter: 2015Q3

REPORT INFORMATION
  Report Type: Spontaneous
  Country: US (occurrence: US)
  Receive Date: 20140129
  Receipt Date: 20150720
  Transmission Date: 20151125
  Serious: Yes (Hospitalization, Other)
  Sender: FDA-Public Use
  Company Number: US-009507513-1401USA012004

PATIENT
  Sex: Female

DRUGS (5)
  1. FOSAMAX [Suspect]
     Active Substance: ALENDRONATE SODIUM
     Dosage: 10 MG, QD
     Route: 048
     Dates: start: 20030815, end: 20041207
  2. FOSAMAX [Suspect]
     Active Substance: ALENDRONATE SODIUM
     Indication: OSTEOPOROSIS
     Dosage: UNK UNK
     Route: 048
     Dates: start: 19960528, end: 2003
  3. ASPIRIN. [Concomitant]
     Active Substance: ASPIRIN
     Dosage: 81 MG, UNK
     Dates: start: 2000
  4. FOSAMAX [Suspect]
     Active Substance: ALENDRONATE SODIUM
     Dosage: 70 MG, QW
     Route: 048
     Dates: end: 2003
  5. VITAMIN D [Concomitant]
     Active Substance: CHOLECALCIFEROL
     Dosage: 1000 IU, UNK
     Dates: start: 2000

REACTIONS (30)
  - Intramedullary rod insertion [Unknown]
  - Surgery [Unknown]
  - Essential tremor [Unknown]
  - Osteoarthritis [Unknown]
  - Blood glucose increased [Unknown]
  - Limb injury [Unknown]
  - Traumatic haematoma [Unknown]
  - Arthritis [Unknown]
  - Periorbital oedema [Unknown]
  - Lumbar spinal stenosis [Unknown]
  - Foot fracture [Unknown]
  - Crepitations [Unknown]
  - Hypercholesterolaemia [Unknown]
  - Peripheral vascular disorder [Unknown]
  - Spinal osteoarthritis [Unknown]
  - Joint swelling [Unknown]
  - Arthralgia [Unknown]
  - Sinus bradycardia [Unknown]
  - Parotid gland enlargement [Unknown]
  - Appendicectomy [Unknown]
  - Hypertension [Unknown]
  - Skin ulcer [Unknown]
  - Exostosis [Unknown]
  - Hypoaesthesia [Unknown]
  - Femur fracture [Recovering/Resolving]
  - Presyncope [Unknown]
  - Dry skin [Unknown]
  - Intervertebral disc degeneration [Unknown]
  - Scoliosis [Unknown]
  - Arthralgia [Unknown]

NARRATIVE: CASE EVENT DATE: 200201
